FAERS Safety Report 9392657 (Version 2)
Quarter: 2013Q3

REPORT INFORMATION
  Report Type: Spontaneous
  Country: DE (occurrence: DE)
  Receive Date: 20130710
  Receipt Date: 20130916
  Transmission Date: 20140515
  Serious: No
  Sender: FDA-Public Use
  Company Number: PHHY2013DE072404

PATIENT
  Sex: Female
  Weight: 100 kg

DRUGS (1)
  1. FEMARA [Suspect]
     Indication: BREAST CANCER
     Dosage: 2.5 MG, IN THE MORNING
     Dates: start: 201302

REACTIONS (2)
  - Feeling hot [Recovered/Resolved]
  - Headache [Recovered/Resolved]
